FAERS Safety Report 5634173-X (Version None)
Quarter: 2008Q1

REPORT INFORMATION
  Report Type: 
  Country: None (occurrence: None)
  Receive Date: 20080219
  Receipt Date: 20080205
  Transmission Date: 20080703
  Serious: No
  Sender: FDA-Public Use
  Company Number: 8029836

PATIENT
  Sex: Male
  Weight: 33 kg

DRUGS (4)
  1. METHYLPHENIDATE HCL [Suspect]
     Indication: ATTENTION DEFICIT/HYPERACTIVITY DISORDER
     Dosage: 20 MG 1/D
     Dates: start: 20070123
  2. METHYLPHENIDATE HCL [Suspect]
     Indication: ATTENTION DEFICIT/HYPERACTIVITY DISORDER
     Dosage: 15 MG
     Dates: start: 20070201, end: 20070207
  3. METHYLPHENIDATE HCL [Suspect]
     Indication: ATTENTION DEFICIT/HYPERACTIVITY DISORDER
     Dosage: 20 MG
     Dates: start: 20070208
  4. ZAPPELIN [Concomitant]

REACTIONS (5)
  - HEADACHE [None]
  - MALAISE [None]
  - MUSCLE TWITCHING [None]
  - NERVOUSNESS [None]
  - TIC [None]
